FAERS Safety Report 9314953 (Version 2)
Quarter: 2013Q3

REPORT INFORMATION
  Report Type: Spontaneous
  Country: US (occurrence: US)
  Receive Date: 20130529
  Receipt Date: 20130709
  Transmission Date: 20140515
  Serious: Yes (Hospitalization)
  Sender: FDA-Public Use
  Company Number: US-B.I. PHARMACEUTICALS,INC./RIDGEFIELD-2013-BI-14652BP

PATIENT
  Age: 58 Year
  Sex: Female
  Weight: 91 kg

DRUGS (5)
  1. ATROVENT INHALATION SOLUTION [Suspect]
     Indication: ASTHMA
     Dosage: 68 MCG
     Route: 055
     Dates: start: 20060823
  2. ATROVENT INHALATION SOLUTION [Suspect]
     Dosage: 17 MCG
     Route: 055
     Dates: start: 2011, end: 201305
  3. ALBUTEROL [Concomitant]
     Indication: ASTHMA
     Dosage: 2 PUF
     Route: 055
  4. ADVAIR [Concomitant]
     Indication: ASTHMA
     Dosage: FORMULATION: DISKUS; DAILY DOSE: 500-50
     Dates: start: 200601
  5. NEXIUM [Concomitant]
     Indication: GASTROOESOPHAGEAL REFLUX DISEASE
     Dosage: 40 MG
     Route: 048
     Dates: start: 200504

REACTIONS (1)
  - Pneumonia [Recovered/Resolved]
